FAERS Safety Report 5216662-5 (Version None)
Quarter: 2006Q4

REPORT INFORMATION
  Report Type: 
  Country: None (occurrence: None)
  Receive Date: 20061130
  Receipt Date: 20060824
  Transmission Date: 20070319
  Serious: Yes (Other)
  Sender: FDA-Public Use
  Company Number: US_0511123491

PATIENT
  Age: 39 Year
  Sex: Female
  Weight: 115.9 kg

DRUGS (4)
  1. ZYPREXA [Suspect]
     Indication: BIPOLAR DISORDER
     Dosage: 5, ORAL
     Route: 048
     Dates: start: 20030801, end: 20050401
  2. DIVALPROEX SODIUM [Concomitant]
  3. CITALOPRAM HYDROBROMIDE [Concomitant]
  4. HYDROCHLORZIDE (HYDROCHLOROTHIAZIDE) [Concomitant]

REACTIONS (4)
  - DIABETES MELLITUS NON-INSULIN-DEPENDENT [None]
  - DIABETIC COMA [None]
  - HYPERGLYCAEMIA [None]
  - WEIGHT INCREASED [None]
